FAERS Safety Report 9754192 (Version 1)
Quarter: 2013Q4

REPORT INFORMATION
  Report Type: Spontaneous
  Country: US (occurrence: US)
  Receive Date: 20131213
  Receipt Date: 20131213
  Transmission Date: 20140711
  Serious: No
  Sender: FDA-Public Use
  Company Number: US-GLAXOSMITHKLINE-A1038532A

PATIENT
  Age: 65 Year
  Sex: Male

DRUGS (1)
  1. NICORETTE NICOTINE POLACRILEX MINT LOZENGE, 2MG [Suspect]
     Indication: EX-TOBACCO USER
     Dates: start: 201305

REACTIONS (2)
  - Drug ineffective [Unknown]
  - Drug administration error [Unknown]
